FAERS Safety Report 7806782-0 (Version None)
Quarter: 2011Q4

REPORT INFORMATION
  Report Type: 
  Country: None (occurrence: None)
  Receive Date: 20111011
  Receipt Date: 20111007
  Transmission Date: 20120403
  Serious: Yes (Death, Hospitalization)
  Sender: FDA-Public Use
  Company Number: PHHY2011MX89070

PATIENT
  Sex: Male

DRUGS (1)
  1. STALEVO 100 [Suspect]
     Indication: PARKINSON'S DISEASE
     Dosage: 3 DF, DAILY
     Route: 048
     Dates: start: 20091108

REACTIONS (2)
  - DISEASE PROGRESSION [None]
  - KIDNEY INFECTION [None]
